FAERS Safety Report 6447548-6 (Version None)
Quarter: 2009Q4

REPORT INFORMATION
  Report Type: 
  Country: None (occurrence: None)
  Receive Date: 20091119
  Receipt Date: 20091109
  Transmission Date: 20100525
  Serious: Yes (Hospitalization)
  Sender: FDA-Public Use
  Company Number: DE-MERCK-0911DEU00046

PATIENT
  Age: 74 Year
  Sex: Female

DRUGS (3)
  1. PRIMAXIN [Suspect]
     Indication: ENDOCARDITIS ENTEROCOCCAL
     Route: 041
  2. PRIMAXIN [Suspect]
     Route: 042
  3. RIFAMPIN [Suspect]
     Indication: ENDOCARDITIS ENTEROCOCCAL
     Route: 065

REACTIONS (1)
  - THERAPEUTIC RESPONSE DECREASED [None]
